FAERS Safety Report 21286324 (Version 1)
Quarter: 2022Q3

REPORT INFORMATION
  Report Type: Spontaneous
  Country: CN (occurrence: CN)
  Receive Date: 20220902
  Receipt Date: 20220902
  Transmission Date: 20221027
  Serious: Yes (Other)
  Sender: FDA-Public Use
  Company Number: CN-PFIZER INC-PV202200051807

PATIENT
  Age: 68 Year
  Sex: Male
  Weight: 53 kg

DRUGS (2)
  1. CELECOXIB [Suspect]
     Active Substance: CELECOXIB
     Indication: Gout
     Dosage: 0.2 G, 1X/DAY
     Route: 048
     Dates: start: 20220802, end: 20220805
  2. FERRIC POLYSACCHARIDE COMPLEX [Suspect]
     Active Substance: FERRIC POLYSACCHARIDE COMPLEX
     Indication: Anaemia
     Dosage: 0.15 G, 1X/DAY
     Route: 048
     Dates: start: 20220719, end: 20220805

REACTIONS (1)
  - Occult blood positive [Recovering/Resolving]

NARRATIVE: CASE EVENT DATE: 20220805
